FAERS Safety Report 4264771-X (Version None)
Quarter: 2004Q1

REPORT INFORMATION
  Report Type: 
  Country: None (occurrence: None)
  Receive Date: 20040102
  Receipt Date: 20031226
  Transmission Date: 20041129
  Serious: Yes (Death)
  Sender: FDA-Public Use
  Company Number: HQWYE940330DEC03

PATIENT
  Age: 49 Year
  Sex: Male

DRUGS (1)
  1. MYLOTARG [Suspect]

REACTIONS (4)
  - DYSGEUSIA [None]
  - MULTI-ORGAN FAILURE [None]
  - PNEUMONIA [None]
  - SHOCK [None]
